FAERS Safety Report 15484160 (Version 2)
Quarter: 2018Q4

REPORT INFORMATION
  Report Type: Spontaneous
  Country: CN (occurrence: CN)
  Receive Date: 20181010
  Receipt Date: 20181016
  Transmission Date: 20190205
  Serious: Yes (Death, Other)
  Sender: FDA-Public Use
  Company Number: CN-SA-2018SA178683

PATIENT
  Sex: Male

DRUGS (1)
  1. CLEXANE INJECTION [Suspect]
     Active Substance: ENOXAPARIN SODIUM
     Indication: CORONARY ARTERY DISEASE
     Dosage: 4000 IU, QD
     Route: 058
     Dates: start: 20180407, end: 20180420

REACTIONS (5)
  - Haemoglobin decreased [Unknown]
  - Somatic dysfunction [Unknown]
  - Injection site bruising [Not Recovered/Not Resolved]
  - Respiratory failure [Fatal]
  - Haematoma [Not Recovered/Not Resolved]

NARRATIVE: CASE EVENT DATE: 20180407
